FAERS Safety Report 24402105 (Version 2)
Quarter: 2024Q4

REPORT INFORMATION
  Report Type: Spontaneous
  Country: US (occurrence: US)
  Receive Date: 20241007
  Receipt Date: 20241026
  Transmission Date: 20250115
  Serious: Yes (Life-Threatening, Hospitalization, Other)
  Sender: DR REDDYS
  Company Number: None

PATIENT
  Age: 43 Year
  Sex: Female

DRUGS (9)
  1. CYCLOPHOSPHAMIDE [Suspect]
     Active Substance: CYCLOPHOSPHAMIDE
     Indication: Invasive ductal breast carcinoma
     Dosage: 4 CYCLES OF CYCLOPHOSPHAMIDE
  2. CYCLOPHOSPHAMIDE [Suspect]
     Active Substance: CYCLOPHOSPHAMIDE
     Indication: Breast cancer female
  3. DOXORUBICIN [Suspect]
     Active Substance: DOXORUBICIN
     Indication: Invasive ductal breast carcinoma
     Dosage: 4 CYCLES OF DOSE-DENSE DOXORUBICIN
  4. DOXORUBICIN [Suspect]
     Active Substance: DOXORUBICIN
     Indication: Breast cancer female
  5. DEXAMETHASONE [Suspect]
     Active Substance: DEXAMETHASONE
     Indication: Antiemetic supportive care
  6. PACLITAXEL [Suspect]
     Active Substance: PACLITAXEL
     Indication: Breast cancer female
     Dosage: 1 DOSE OF PACLITAXEL PRIOR TO PRESENTATION
  7. PACLITAXEL [Suspect]
     Active Substance: PACLITAXEL
     Indication: Invasive ductal breast carcinoma
  8. LEUPROLIDE [Concomitant]
     Active Substance: LEUPROLIDE
     Indication: Breast cancer female
  9. LEUPROLIDE [Concomitant]
     Active Substance: LEUPROLIDE
     Indication: Invasive ductal breast carcinoma

REACTIONS (2)
  - Pneumocystis jirovecii pneumonia [Recovering/Resolving]
  - White blood cell count decreased [Unknown]
